FAERS Safety Report 9062236 (Version 1)
Quarter: 2013Q1

REPORT INFORMATION
  Report Type: Spontaneous
  Country: US (occurrence: US)
  Receive Date: 20130129
  Receipt Date: 20130129
  Transmission Date: 20140127
  Serious: Yes (Hospitalization, Other)
  Sender: FDA-Public Use
  Company Number: US-ELI_LILLY_AND_COMPANY-US201301006705

PATIENT
  Age: 86 Year
  Sex: Female

DRUGS (2)
  1. HUMULIN 30% REGULAR, 70% NPH [Suspect]
     Indication: DIABETES MELLITUS
     Dosage: 40 U, EACH MORNING
     Dates: start: 1988
  2. HUMULIN 30% REGULAR, 70% NPH [Suspect]
     Dosage: 23 U, EACH EVENING
     Dates: start: 1988

REACTIONS (7)
  - Hip fracture [Unknown]
  - Fall [Unknown]
  - Blindness [Unknown]
  - Blood glucose increased [Unknown]
  - Blood glucose decreased [Unknown]
  - Intentional drug misuse [Unknown]
  - Incorrect dose administered [Unknown]
